FAERS Safety Report 6388317-5 (Version None)
Quarter: 2009Q4

REPORT INFORMATION
  Report Type: 
  Country: None (occurrence: None)
  Receive Date: 20091001
  Receipt Date: 20091001
  Transmission Date: 20100525
  Serious: Yes (Life-Threatening, Hospitalization)
  Sender: FDA-Public Use
  Company Number: None

PATIENT
  Age: 77 Year
  Sex: Male
  Weight: 81.6475 kg

DRUGS (1)
  1. TRELSTAR LA [Suspect]
     Indication: PROSTATIC SPECIFIC ANTIGEN INCREASED
     Dosage: 11.25 MG 1 EVERY 3 MO IM
     Route: 030
     Dates: start: 20090716, end: 20090716

REACTIONS (1)
  - PANCREATITIS ACUTE [None]
